FAERS Safety Report 22953078 (Version 3)
Quarter: 2023Q4

REPORT INFORMATION
  Report Type: Spontaneous
  Country: US (occurrence: US)
  Receive Date: 20230918
  Receipt Date: 20231023
  Transmission Date: 20240110
  Serious: Yes (Disabling, Other)
  Sender: FDA-Public Use
  Company Number: US-SANOFI-01758906

PATIENT
  Age: 49 Year
  Sex: Female
  Weight: 79.365 kg

DRUGS (2)
  1. LANTUS SOLOSTAR [Suspect]
     Active Substance: INSULIN GLARGINE
     Indication: Type 2 diabetes mellitus
     Dosage: 32 IU, QD
  2. LANTUS SOLOSTAR [Suspect]
     Active Substance: INSULIN GLARGINE
     Dosage: 30 UNK

REACTIONS (10)
  - Disability [Unknown]
  - Burning sensation [Unknown]
  - Cough [Unknown]
  - Throat clearing [Unknown]
  - Gait disturbance [Unknown]
  - Back pain [Unknown]
  - Attention deficit hyperactivity disorder [Unknown]
  - Weight increased [Unknown]
  - Glycosylated haemoglobin increased [Unknown]
  - Accidental exposure to product [Unknown]
